FAERS Safety Report 6491079-4 (Version None)
Quarter: 2009Q4

REPORT INFORMATION
  Report Type: 
  Country: None (occurrence: None)
  Receive Date: 20091211
  Receipt Date: 20091203
  Transmission Date: 20100525
  Serious: Yes (Hospitalization, Other)
  Sender: FDA-Public Use
  Company Number: IL-PFIZER INC-2009284582

PATIENT
  Age: 72 Year
  Sex: Male
  Weight: 58 kg

DRUGS (12)
  1. CAMPTOSAR [Suspect]
     Indication: PANCREATIC CARCINOMA METASTATIC
     Dosage: 300 MG, ONCE IN 14 DAYS
     Route: 042
     Dates: start: 20091013, end: 20091013
  2. CAMPTOSAR [Suspect]
     Dosage: UNK
     Dates: start: 20091101
  3. FLUOROURACIL [Suspect]
     Indication: PANCREATIC CARCINOMA METASTATIC
     Dosage: 600 MG, ONCE IN 14 DAYS
     Dates: start: 20091013, end: 20091013
  4. LEUCOVORIN CALCIUM [Suspect]
     Indication: PANCREATIC CARCINOMA METASTATIC
     Dosage: 670 MG, ONCE IN 14 DAYS
     Dates: start: 20091013, end: 20091013
  5. CREON [Concomitant]
  6. INSULIN ASPART [Concomitant]
     Indication: DIABETES MELLITUS
  7. OPTALGIN [Concomitant]
  8. ETOPAN [Concomitant]
  9. OXYCONTIN [Concomitant]
     Dosage: 30 MG, 2X/DAY
  10. OXYCOD [Concomitant]
     Dosage: 4-5 ML, AS NEEDED
  11. LORIVAN [Concomitant]
  12. ARCOXIA [Concomitant]

REACTIONS (7)
  - ASTHENIA [None]
  - CHILLS [None]
  - DIABETES MELLITUS INADEQUATE CONTROL [None]
  - HAEMOPTYSIS [None]
  - MUSCULAR WEAKNESS [None]
  - ODYNOPHAGIA [None]
  - PYREXIA [None]
